FAERS Safety Report 10981154 (Version 2)
Quarter: 2015Q2

REPORT INFORMATION
  Report Type: Spontaneous
  Country: US (occurrence: US)
  Receive Date: 20150402
  Receipt Date: 20150525
  Transmission Date: 20150821
  Serious: No
  Sender: FDA-Public Use
  Company Number: US-JNJFOC-20140820642

PATIENT
  Age: 75 Year
  Sex: Female
  Weight: 51.71 kg

DRUGS (6)
  1. IMODIUM MULTI-SYMPTOM RELIEF [Suspect]
     Active Substance: DIMETHICONE\LOPERAMIDE HYDROCHLORIDE
     Indication: GASTRIC DISORDER
     Dosage: HCL 2 MG, SIMETHICANE 125 MG
     Route: 048
     Dates: start: 20140816
  2. IMODIUM MULTI-SYMPTOM RELIEF [Suspect]
     Active Substance: DIMETHICONE\LOPERAMIDE HYDROCHLORIDE
     Indication: DIARRHOEA
     Dosage: HCL 2 MG, SIMETHICANE 125 MG
     Route: 048
     Dates: start: 20140816
  3. LEVOTHYROXINE [Concomitant]
     Active Substance: LEVOTHYROXINE
     Indication: THYROID DISORDER
     Route: 065
  4. LISINOPRIL. [Concomitant]
     Active Substance: LISINOPRIL
     Indication: HYPERTENSION
     Route: 065
  5. IMODIUM MULTI-SYMPTOM RELIEF [Suspect]
     Active Substance: DIMETHICONE\LOPERAMIDE HYDROCHLORIDE
     Indication: INFLUENZA
     Dosage: HCL 2 MG, SIMETHICANE 125 MG
     Route: 048
     Dates: start: 20140816
  6. FOSAMAX [Concomitant]
     Active Substance: ALENDRONATE SODIUM
     Indication: OSTEOPOROSIS
     Route: 065

REACTIONS (4)
  - Product difficult to swallow [Recovered/Resolved]
  - Wrong technique in drug usage process [Unknown]
  - Product size issue [Unknown]
  - Product use issue [Unknown]

NARRATIVE: CASE EVENT DATE: 20140818
